FAERS Safety Report 6122273-X (Version None)
Quarter: 2009Q1

REPORT INFORMATION
  Report Type: 
  Country: None (occurrence: None)
  Receive Date: 20090316
  Receipt Date: 20090311
  Transmission Date: 20090719
  Serious: Yes (Other)
  Sender: FDA-Public Use
  Company Number: DE-EBEWE-0304PACLI09

PATIENT
  Age: 69 Year
  Sex: Male
  Weight: 66 kg

DRUGS (5)
  1. PACLITAXEL [Suspect]
     Indication: OROPHARYNGEAL CANCER STAGE UNSPECIFIED
     Dosage: IV
     Route: 042
     Dates: start: 20080917
  2. AMLODIPINE [Concomitant]
  3. PANTOPRAZOLE SODIUM [Concomitant]
  4. TORASEMIDE [Concomitant]
  5. AMOXICILLIN AND CLAVULANATE POTASSIUM [Concomitant]

REACTIONS (2)
  - CARDIAC ARREST [None]
  - SHOCK [None]
